FAERS Safety Report 12792061 (Version 1)
Quarter: 2016Q3

REPORT INFORMATION
  Report Type: Spontaneous
  Country: US (occurrence: US)
  Receive Date: 20160928
  Receipt Date: 20160928
  Transmission Date: 20161109
  Serious: No
  Sender: FDA-Public Use
  Company Number: None

PATIENT
  Age: 71 Year
  Sex: Male
  Weight: 169.7 kg

DRUGS (1)
  1. LORAZEPAM. [Suspect]
     Active Substance: LORAZEPAM
     Indication: AGITATION
     Route: 042
     Dates: start: 20160827, end: 20160828

REACTIONS (2)
  - Somnolence [None]
  - Respiratory acidosis [None]

NARRATIVE: CASE EVENT DATE: 20160828
